FAERS Safety Report 5124330-3 (Version None)
Quarter: 2006Q3

REPORT INFORMATION
  Report Type: 
  Country: None (occurrence: None)
  Receive Date: 20060816
  Receipt Date: 20060531
  Transmission Date: 20061208
  Serious: No
  Sender: FDA-Public Use
  Company Number: US200606000435

PATIENT
  Sex: Male

DRUGS (3)
  1. CIALIS [Suspect]
     Indication: DRUG USE FOR UNKNOWN INDICATION
     Dosage: 10 MG
     Dates: start: 20050501
  2. COZAAR [Concomitant]
  3. PLAVIX [Concomitant]

REACTIONS (1)
  - DRUG INEFFECTIVE [None]
